FAERS Safety Report 7593863-2 (Version None)
Quarter: 2011Q3

REPORT INFORMATION
  Report Type: 
  Country: None (occurrence: None)
  Receive Date: 20110706
  Receipt Date: 20110628
  Transmission Date: 20111222
  Serious: Yes (Hospitalization)
  Sender: FDA-Public Use
  Company Number: PHHY2011US48787

PATIENT
  Sex: Female
  Weight: 37 kg

DRUGS (4)
  1. TOBI [Suspect]
     Dosage: 300 MG, BID VIA NEBULIZER IN A CYCLE OF 28 DAYS ON AND 28 DAYS OFF
     Dates: start: 20110209
  2. PULMOZYME [Concomitant]
     Dosage: 2.5 ML, QD
  3. FLOVENT [Concomitant]
     Dosage: TWICE A DAY
  4. CREON 12000 [Concomitant]
     Indication: PANCREATIC INSUFFICIENCY
     Dosage: WITH MEALS
     Route: 048

REACTIONS (2)
  - BRONCHIAL SECRETION RETENTION [None]
  - INFECTIVE PULMONARY EXACERBATION OF CYSTIC FIBROSIS [None]
